FAERS Safety Report 26003583 (Version 1)
Quarter: 2025Q4

REPORT INFORMATION
  Report Type: Spontaneous
  Country: GB (occurrence: GB)
  Receive Date: 20251106
  Receipt Date: 20251106
  Transmission Date: 20260117
  Serious: Yes (Other)
  Sender: AUROBINDO
  Company Number: GB-BoehringerIngelheim-2025-BI-102814

PATIENT
  Sex: Male
  Weight: 91 kg

DRUGS (1)
  1. NINTEDANIB [Suspect]
     Active Substance: NINTEDANIB
     Indication: Idiopathic pulmonary fibrosis
     Dosage: 150 MILLIGRAM, TWO TIMES A DAY
     Route: 065

REACTIONS (4)
  - Idiopathic pulmonary fibrosis [Unknown]
  - Forced expiratory volume decreased [Unknown]
  - Forced vital capacity decreased [Unknown]
  - Lung diffusion test decreased [Unknown]
